FAERS Safety Report 9844413 (Version 1)
Quarter: 2014Q1

REPORT INFORMATION
  Report Type: Spontaneous
  Country: US (occurrence: US)
  Receive Date: 20140127
  Receipt Date: 20140127
  Transmission Date: 20141002
  Serious: Yes (Other)
  Sender: FDA-Public Use
  Company Number: PHEH2014US001726

PATIENT
  Sex: Female

DRUGS (5)
  1. FOCALIN XR [Suspect]
     Indication: ATTENTION DEFICIT/HYPERACTIVITY DISORDER
     Dosage: 20 MG, BID
     Route: 048
  2. PERCOCET [Concomitant]
     Indication: PAIN
     Dosage: UNK UKN, UNK
  3. VITAMIN D [Concomitant]
     Dosage: UNK UKN, UNK
  4. MULTAMIN//VITAMINS NOS [Concomitant]
     Dosage: UNK UKN, UNK
  5. CYMBALTA [Concomitant]
     Dosage: 30 MG, UNK

REACTIONS (4)
  - Retinal tear [Unknown]
  - Retinal detachment [Unknown]
  - Visual impairment [Unknown]
  - Glaucoma [Unknown]
